FAERS Safety Report 16641628 (Version 2)
Quarter: 2019Q3

REPORT INFORMATION
  Report Type: Spontaneous
  Country: FR (occurrence: FR)
  Receive Date: 20190729
  Receipt Date: 20190803
  Transmission Date: 20191004
  Serious: Yes (Death)
  Sender: FDA-Public Use
  Company Number: FR-ACCORD-149544

PATIENT
  Age: 49 Year
  Sex: Male

DRUGS (4)
  1. PAROXETINE. [Suspect]
     Active Substance: PAROXETINE
     Dates: start: 2017
  2. COCAINE [Suspect]
     Active Substance: COCAINE
     Dates: start: 2017
  3. AMITRIPTYLINE [Suspect]
     Active Substance: AMITRIPTYLINE
     Dates: start: 2017
  4. ALIMEMAZINE/ALIMEMAZINE TARTRATE [Suspect]
     Active Substance: TRIMEPRAZINE
     Dates: start: 2017

REACTIONS (5)
  - Pulmonary oedema [Fatal]
  - Drug abuse [Fatal]
  - Asphyxia [Fatal]
  - Poisoning [Fatal]
  - Pulmonary congestion [Fatal]

NARRATIVE: CASE EVENT DATE: 2017
